FAERS Safety Report 7379025-2 (Version None)
Quarter: 2011Q1

REPORT INFORMATION
  Report Type: 
  Country: None (occurrence: None)
  Receive Date: 20110328
  Receipt Date: 20110317
  Transmission Date: 20110831
  Serious: Yes (Hospitalization)
  Sender: FDA-Public Use
  Company Number: US-BAXTER-2011BH005863

PATIENT
  Age: 67 Year
  Sex: Female

DRUGS (5)
  1. PLAVIX [Concomitant]
     Indication: STENT PLACEMENT
     Route: 065
     Dates: end: 20110301
  2. PLAVIX [Suspect]
     Indication: PRODUCT USED FOR UNKNOWN INDICATION
     Route: 065
     Dates: end: 20110301
  3. ASPIRIN [Suspect]
     Indication: PRODUCT USED FOR UNKNOWN INDICATION
     Route: 065
     Dates: end: 20110301
  4. DIANEAL [Suspect]
     Indication: PERITONEAL DIALYSIS
     Route: 033
     Dates: start: 20110101, end: 20110301
  5. ASPIRIN [Concomitant]
     Indication: STENT PLACEMENT
     Route: 065
     Dates: end: 20110301

REACTIONS (6)
  - GASTROENTERITIS VIRAL [None]
  - DIARRHOEA [None]
  - VOMITING [None]
  - NAUSEA [None]
  - MUSCLE SPASMS [None]
  - GASTROINTESTINAL HAEMORRHAGE [None]
